FAERS Safety Report 16994389 (Version 1)
Quarter: 2019Q4

REPORT INFORMATION
  Report Type: Spontaneous
  Country: FR (occurrence: FR)
  Receive Date: 20191105
  Receipt Date: 20191105
  Transmission Date: 20200122
  Serious: Yes (Other)
  Sender: FDA-Public Use
  Company Number: FR-ASTRAZENECA-2019SF55826

PATIENT
  Sex: Male

DRUGS (1)
  1. DURVALUMAB. [Suspect]
     Active Substance: DURVALUMAB
     Dosage: UNSPECIFIED DOSAGE
     Route: 042

REACTIONS (4)
  - Cardiac disorder [Unknown]
  - Metastases to central nervous system [Unknown]
  - Disease progression [Unknown]
  - Radiation pneumonitis [Unknown]
